FAERS Safety Report 23994870 (Version 3)
Quarter: 2024Q3

REPORT INFORMATION
  Report Type: Spontaneous
  Country: US (occurrence: US)
  Receive Date: 20240620
  Receipt Date: 20240715
  Transmission Date: 20241016
  Serious: Yes (Death, Other)
  Sender: PFIZER
  Company Number: US-PFIZER INC-PV202400080550

PATIENT
  Age: 55 Year
  Sex: Male
  Weight: 88.9 kg

DRUGS (3)
  1. FENTANYL CITRATE [Suspect]
     Active Substance: FENTANYL CITRATE
     Indication: Cardiogenic shock
     Dosage: 2000 UG
     Route: 042
  2. FENTANYL CITRATE [Suspect]
     Active Substance: FENTANYL CITRATE
     Indication: Sedation
  3. SODIUM CHLORIDE [Concomitant]
     Active Substance: SODIUM CHLORIDE
     Indication: Cardiogenic shock
     Dosage: 200 ML
     Route: 042

REACTIONS (2)
  - Ventricular tachycardia [Fatal]
  - Off label use [Unknown]

NARRATIVE: CASE EVENT DATE: 20240319
